FAERS Safety Report 12864961 (Version 1)
Quarter: 2016Q4

REPORT INFORMATION
  Report Type: Spontaneous
  Country: US (occurrence: US)
  Receive Date: 20161019
  Receipt Date: 20161019
  Transmission Date: 20170207
  Serious: Yes (Other)
  Sender: FDA-Public Use
  Company Number: None

PATIENT
  Age: 56 Year
  Sex: Male
  Weight: 96.75 kg

DRUGS (16)
  1. PRILOSEC [Concomitant]
     Active Substance: OMEPRAZOLE MAGNESIUM
  2. VIT. D [Concomitant]
  3. HYOSCYAMINE 0.125 SUBLINGUAL TAB [Suspect]
     Active Substance: HYOSCYAMINE
     Indication: IRRITABLE BOWEL SYNDROME
     Dosage: ?          QUANTITY:2 TABLET(S);?
     Route: 060
     Dates: start: 20141023, end: 20160723
  4. BUPROPION HCL ER (XL) [Concomitant]
  5. ESCITALOPRAM (LEXAPRO) [Concomitant]
  6. ADVIL [Concomitant]
     Active Substance: IBUPROFEN
  7. VITAMIN C [Concomitant]
     Active Substance: ASCORBIC ACID
  8. PROPRANOLOL (INDERAL LA) [Concomitant]
  9. BABY ASPIRIN [Concomitant]
     Active Substance: ASPIRIN
  10. ALEVE [Concomitant]
     Active Substance: NAPROXEN SODIUM
  11. HYOSCYAMINE 0.125 SUBLINGUAL TAB [Suspect]
     Active Substance: HYOSCYAMINE
     Indication: CROHN^S DISEASE
     Dosage: ?          QUANTITY:2 TABLET(S);?
     Route: 060
     Dates: start: 20141023, end: 20160723
  12. SUMATRIPTAN (IMITREX) [Concomitant]
  13. FLOMAX [Concomitant]
     Active Substance: TAMSULOSIN HYDROCHLORIDE
  14. FENOFIBRATE MICRONIZED (LOFIBRA) [Concomitant]
  15. TYLENOL [Concomitant]
     Active Substance: ACETAMINOPHEN
  16. CPAP MACHINE [Concomitant]

REACTIONS (6)
  - Fatigue [None]
  - Myocardial infarction [None]
  - Confusional state [None]
  - Dysarthria [None]
  - Malaise [None]
  - Cerebrovascular accident [None]

NARRATIVE: CASE EVENT DATE: 20160723
